FAERS Safety Report 5460709-8 (Version None)
Quarter: 2007Q3

REPORT INFORMATION
  Report Type: 
  Country: None (occurrence: None)
  Receive Date: 20070918
  Receipt Date: 20070903
  Transmission Date: 20080115
  Serious: Yes (Life-Threatening, Hospitalization, Disabling)
  Sender: FDA-Public Use
  Company Number: B0486722A

PATIENT
  Age: 32 Year
  Sex: Male

DRUGS (2)
  1. LAMOTRIGINE [Suspect]
     Indication: CONVULSION
  2. VALPROATE SODIUM [Concomitant]

REACTIONS (11)
  - ALOPECIA EFFLUVIUM [None]
  - BLOOD PRESSURE DECREASED [None]
  - CANDIDIASIS [None]
  - DRUG HYPERSENSITIVITY [None]
  - ESCHERICHIA INFECTION [None]
  - HEPATOSPLENOMEGALY [None]
  - LYMPHADENOPATHY [None]
  - MADAROSIS [None]
  - ONYCHOMADESIS [None]
  - RESPIRATORY FAILURE [None]
  - TOXIC EPIDERMAL NECROLYSIS [None]
